FAERS Safety Report 17585203 (Version 1)
Quarter: 2020Q1

REPORT INFORMATION
  Report Type: Spontaneous
  Country: FR (occurrence: FR)
  Receive Date: 20200326
  Receipt Date: 20200326
  Transmission Date: 20200409
  Serious: Yes (Hospitalization)
  Sender: FDA-Public Use
  Company Number: FR-ACCORD-176975

PATIENT
  Age: 77 Year
  Sex: Female
  Weight: 57 kg

DRUGS (18)
  1. LEVOTHYROXINE. [Concomitant]
     Active Substance: LEVOTHYROXINE
  2. NICARDIPINE [Concomitant]
     Active Substance: NICARDIPINE
  3. MABTHERA [Suspect]
     Active Substance: RITUXIMAB
     Indication: LYMPHOMA
     Route: 042
     Dates: start: 20191009, end: 20191010
  4. DIOSMECTITE [Concomitant]
     Active Substance: MONTMORILLONITE
  5. SERTRALINE [Concomitant]
     Active Substance: SERTRALINE HYDROCHLORIDE
  6. DIFFU K [Concomitant]
     Active Substance: POTASSIUM CHLORIDE
  7. CYTARABINE/CYTARABINE HYDROCHLORIDE/CYTARABINE OCFOSFATE [Suspect]
     Active Substance: CYTARABINE
     Indication: LYMPHOMA
     Dosage: DOSE: 2G/M2
     Route: 042
     Dates: start: 20191010, end: 20191010
  8. CANDESARTAN. [Concomitant]
     Active Substance: CANDESARTAN
  9. ZELITREX [Concomitant]
     Active Substance: VALACYCLOVIR HYDROCHLORIDE
  10. ZOPICLONE [Concomitant]
     Active Substance: ZOPICLONE
  11. METFORMIN [Concomitant]
     Active Substance: METFORMIN HYDROCHLORIDE
  12. IPRATROPIUM/IPRATROPIUM BROMIDE [Concomitant]
     Active Substance: IPRATROPIUM
  13. NEUPRO [Concomitant]
     Active Substance: ROTIGOTINE
  14. AMIODARONE [Concomitant]
     Active Substance: AMIODARONE
  15. ACETORPHAN [Concomitant]
     Active Substance: RACECADOTRIL
     Dosage: RACECADOTRIL
  16. OXALIPLATIN. [Suspect]
     Active Substance: OXALIPLATIN
     Indication: LYMPHOMA
     Route: 042
     Dates: start: 20191009, end: 20191010
  17. NEOFORDEX [Suspect]
     Active Substance: DEXAMETHASONE ACETATE
     Indication: LYMPHOMA
     Dosage: STRENGTH: 40 MG
     Route: 048
     Dates: start: 20191010, end: 20191014
  18. SALBUTAMOL [Concomitant]
     Active Substance: ALBUTEROL

REACTIONS (3)
  - Pyrexia [Recovered/Resolved]
  - Off label use [Unknown]
  - Pancytopenia [Recovered/Resolved]

NARRATIVE: CASE EVENT DATE: 20191011
